FAERS Safety Report 24162559 (Version 1)
Quarter: 2024Q3

REPORT INFORMATION
  Report Type: Spontaneous
  Country: US (occurrence: US)
  Receive Date: 20240801
  Receipt Date: 20240801
  Transmission Date: 20241016
  Serious: No
  Sender: NOVARTIS
  Company Number: US-002147023-NVSC2024US156713

PATIENT
  Sex: Female

DRUGS (2)
  1. TAFINLAR [Suspect]
     Active Substance: DABRAFENIB MESYLATE
     Indication: Ovarian cancer
     Dosage: UNK
     Route: 048
     Dates: start: 202402
  2. MEKINIST [Suspect]
     Active Substance: TRAMETINIB DIMETHYL SULFOXIDE
     Indication: Ovarian cancer
     Dosage: UNK (CAPSULE)
     Route: 048
     Dates: start: 202001

REACTIONS (3)
  - Pyrexia [Recovering/Resolving]
  - Chills [Recovering/Resolving]
  - Off label use [Unknown]
